FAERS Safety Report 6068838-5 (Version None)
Quarter: 2009Q1

REPORT INFORMATION
  Report Type: 
  Country: None (occurrence: None)
  Receive Date: 20090206
  Receipt Date: 20090127
  Transmission Date: 20090719
  Serious: Yes (Hospitalization)
  Sender: FDA-Public Use
  Company Number: FR-ABBOTT-09P-056-0500096-00

PATIENT
  Sex: Female

DRUGS (5)
  1. DEPAKENE [Suspect]
     Indication: EPILEPSY
     Dosage: 1200MG DAILY
     Dates: start: 20081128, end: 20081130
  2. FOSPHENYTOIN SODIUM [Suspect]
     Indication: EPILEPSY
     Route: 042
     Dates: start: 20081127, end: 20081127
  3. AUGMENTIN '125' [Suspect]
     Indication: LUNG DISORDER
     Dates: start: 20081127
  4. LASILIX [Concomitant]
     Indication: DRUG USE FOR UNKNOWN INDICATION
     Route: 042
     Dates: start: 20081128, end: 20081129
  5. LOVENOX [Concomitant]
     Indication: DRUG USE FOR UNKNOWN INDICATION
     Route: 058
     Dates: start: 20081127, end: 20081130

REACTIONS (1)
  - ERYTHEMA [None]
